FAERS Safety Report 11868697 (Version 1)
Quarter: 2015Q4

REPORT INFORMATION
  Report Type: Report from Study
  Country: US (occurrence: US)
  Receive Date: 20151225
  Receipt Date: 20151225
  Transmission Date: 20160305
  Serious: Yes (Other)
  Sender: FDA-Public Use
  Company Number: US-AMGEN-USASP2015104698

PATIENT
  Age: 79 Year
  Sex: Female

DRUGS (2)
  1. PROLIA [Suspect]
     Active Substance: DENOSUMAB
     Indication: PRODUCT USED FOR UNKNOWN INDICATION
     Dosage: UNK
     Route: 065
  2. FOSAMAX [Concomitant]
     Active Substance: ALENDRONATE SODIUM
     Dosage: UNK

REACTIONS (9)
  - Oral disorder [Unknown]
  - Spinal fracture [Unknown]
  - Endodontic procedure [Unknown]
  - Artificial crown procedure [Unknown]
  - Rash [Unknown]
  - Device related infection [Unknown]
  - Gingival pain [Unknown]
  - Abscess oral [Unknown]
  - Root canal infection [Unknown]

NARRATIVE: CASE EVENT DATE: 201501
